FAERS Safety Report 12266872 (Version 1)
Quarter: 2016Q2

REPORT INFORMATION
  Report Type: Spontaneous
  Country: US (occurrence: None)
  Receive Date: 20160413
  Receipt Date: 20160413
  Transmission Date: 20160815
  Serious: No
  Sender: FDA-Public Use
  Company Number: None

PATIENT
  Age: 37 Year
  Sex: Female
  Weight: 55.79 kg

DRUGS (2)
  1. SLOW RELEASE IRON PILLS [Concomitant]
  2. REFRESH CELLUVISC [Suspect]
     Active Substance: CARBOXYMETHYLCELLULOSE SODIUM
     Indication: DRY EYE
     Dosage: 1 OR 2 DROPS EACH EYE 2X-3X A DAY OR AS NEEDED EYE DROPS
     Dates: start: 201602, end: 201602

REACTIONS (3)
  - Eye irritation [None]
  - Eye pain [None]
  - Product contamination physical [None]
